FAERS Safety Report 5793905-0 (Version None)
Quarter: 2008Q2

REPORT INFORMATION
  Report Type: 
  Country: None (occurrence: None)
  Receive Date: 20080627
  Receipt Date: 20080619
  Transmission Date: 20081010
  Serious: Yes (Hospitalization)
  Sender: FDA-Public Use
  Company Number: FR-BOEHRINGER INGELHEIM GMBH, GERMANY-2008-FF-00479FF

PATIENT
  Sex: Male

DRUGS (2)
  1. PERSANTINE [Suspect]
     Indication: MIGRAINE
     Route: 048
  2. ASPEGIC 325 [Concomitant]
     Indication: MIGRAINE
     Route: 048

REACTIONS (1)
  - SUBDURAL HAEMATOMA [None]
